FAERS Safety Report 23988532 (Version 2)
Quarter: 2024Q2

REPORT INFORMATION
  Report Type: Spontaneous
  Country: GB (occurrence: GB)
  Receive Date: 20240619
  Receipt Date: 20240621
  Transmission Date: 20240715
  Serious: Yes (Other)
  Sender: FDA-Public Use
  Company Number: GB-MHRA-WEBRADR-202406181145212990-DQLJV

PATIENT
  Age: 46 Year
  Sex: Female
  Weight: 96 kg

DRUGS (6)
  1. RINVOQ [Suspect]
     Active Substance: UPADACITINIB
     Indication: Rheumatoid arthritis
     Route: 048
     Dates: start: 20240508
  2. METHOTREXATE [Concomitant]
     Active Substance: METHOTREXATE
     Indication: Rheumatoid arthritis
  3. Seven seas jointcare supplex + turmeric [Concomitant]
     Indication: Rheumatoid arthritis
  4. VITAMIN D [Concomitant]
     Active Substance: VITAMIN D NOS
     Indication: Rheumatoid arthritis
     Dosage: SUBSTANCES
  5. FOLIC ACID [Concomitant]
     Active Substance: FOLIC ACID
     Indication: Rheumatoid arthritis
  6. HYDROXYCHLOROQUINE [Concomitant]
     Active Substance: HYDROXYCHLOROQUINE
     Indication: Rheumatoid arthritis

REACTIONS (5)
  - Rash [Not Recovered/Not Resolved]
  - Depressed mood [Not Recovered/Not Resolved]
  - Mouth ulceration [Not Recovered/Not Resolved]
  - Oral herpes [Recovering/Resolving]
  - Fatigue [Not Recovered/Not Resolved]

NARRATIVE: CASE EVENT DATE: 20240528
